FAERS Safety Report 10070242 (Version 1)
Quarter: 2014Q2

REPORT INFORMATION
  Report Type: Spontaneous
  Country: US (occurrence: US)
  Receive Date: 20140410
  Receipt Date: 20140410
  Transmission Date: 20141212
  Serious: Yes (Other)
  Sender: FDA-Public Use
  Company Number: US-AMGEN INC.-USASP2014023943

PATIENT
  Age: 72 Year
  Sex: Male

DRUGS (5)
  1. SENSIPAR [Suspect]
     Indication: HYPERPARATHYROIDISM SECONDARY
     Dosage: 30 MG, QD
     Route: 065
  2. RENVELA [Concomitant]
  3. INSULIN [Concomitant]
  4. NITROGLYCERIN [Concomitant]
  5. ZOCOR [Concomitant]

REACTIONS (3)
  - Blood parathyroid hormone increased [Unknown]
  - Pruritus [Recovered/Resolved]
  - Rash [Recovered/Resolved]
